FAERS Safety Report 9116528 (Version 1)
Quarter: 2013Q1

REPORT INFORMATION
  Report Type: Spontaneous
  Country: US (occurrence: US)
  Receive Date: 20130225
  Receipt Date: 20130225
  Transmission Date: 20140127
  Serious: No
  Sender: FDA-Public Use
  Company Number: US-NOVEN-13US006100

PATIENT
  Sex: Female

DRUGS (1)
  1. MINIVELLE [Suspect]
     Dosage: 0.1 MG, 2/WEEK
     Route: 062
     Dates: start: 20130120, end: 20130125

REACTIONS (2)
  - Cheilitis [Recovered/Resolved]
  - Hypersensitivity [Recovered/Resolved]
